FAERS Safety Report 5477292-3 (Version None)
Quarter: 2007Q4

REPORT INFORMATION
  Report Type: 
  Country: None (occurrence: None)
  Receive Date: 20071004
  Receipt Date: 20070928
  Transmission Date: 20080405
  Serious: Yes (Other)
  Sender: FDA-Public Use
  Company Number: HQWYE125904FEB05

PATIENT
  Sex: Female

DRUGS (6)
  1. PREMPRO [Suspect]
     Indication: MENOPAUSAL SYMPTOMS
  2. METOPROLOL SUCCINATE [Concomitant]
     Indication: ARRHYTHMIA
  3. MEDROXYPROGESTERONE [Suspect]
     Indication: MENOPAUSAL SYMPTOMS
  4. ASPIRIN [Concomitant]
  5. PREMARIN [Suspect]
     Indication: MENOPAUSAL SYMPTOMS
  6. CYCRIN [Suspect]
     Indication: MENOPAUSAL SYMPTOMS

REACTIONS (3)
  - BREAST CANCER METASTATIC [None]
  - OESTROGEN RECEPTOR ASSAY POSITIVE [None]
  - PROGESTERONE RECEPTOR ASSAY POSITIVE [None]
